FAERS Safety Report 23203226 (Version 1)
Quarter: 2023Q4

REPORT INFORMATION
  Report Type: Spontaneous
  Country: US (occurrence: US)
  Receive Date: 20231120
  Receipt Date: 20231120
  Transmission Date: 20240110
  Serious: No
  Sender: FDA-Public Use
  Company Number: US-BAUSCHBL-2023BNL011517

PATIENT
  Sex: Male

DRUGS (1)
  1. LATANOPROST [Suspect]
     Active Substance: LATANOPROST
     Indication: Product used for unknown indication
     Dosage: TAKING IT FOR OVER A YEAR.
     Route: 065

REACTIONS (7)
  - Skin laceration [Unknown]
  - Rhinalgia [Unknown]
  - Rhinorrhoea [Unknown]
  - Chapped lips [Unknown]
  - Dysuria [Unknown]
  - Rash [Unknown]
  - Product formulation issue [Unknown]
